FAERS Safety Report 6519306-5 (Version None)
Quarter: 2009Q4

REPORT INFORMATION
  Report Type: 
  Country: None (occurrence: None)
  Receive Date: 20091228
  Receipt Date: 20091217
  Transmission Date: 20100525
  Serious: Yes (Hospitalization, Other)
  Sender: FDA-Public Use
  Company Number: DE-JNJFOC-20060805978

PATIENT
  Age: 42 Year
  Sex: Male
  Weight: 98 kg

DRUGS (4)
  1. INFLIXIMAB [Suspect]
     Route: 042
  2. INFLIXIMAB [Suspect]
     Indication: CROHN'S DISEASE
     Route: 042
  3. PREDNISONE [Concomitant]
  4. PREDNISONE [Concomitant]
     Indication: CROHN'S DISEASE

REACTIONS (1)
  - MENINGITIS LISTERIA [None]
